FAERS Safety Report 7290974-6 (Version None)
Quarter: 2011Q1

REPORT INFORMATION
  Report Type: 
  Country: None (occurrence: None)
  Receive Date: 20110214
  Receipt Date: 20110131
  Transmission Date: 20110831
  Serious: Yes (Hospitalization)
  Sender: FDA-Public Use
  Company Number: US-ACTELION-A-US2007-16987

PATIENT

DRUGS (3)
  1. TRACLEER [Suspect]
     Indication: PULMONARY ARTERIAL HYPERTENSION
     Route: 048
     Dates: start: 20040629
  2. REVATIO [Concomitant]
  3. FLOLAN [Concomitant]

REACTIONS (9)
  - DYSSTASIA [None]
  - MALAISE [None]
  - PULMONARY ARTERIAL PRESSURE INCREASED [None]
  - CYANOSIS [None]
  - DYSPNOEA [None]
  - OXYGEN CONSUMPTION [None]
  - OXYGEN CONSUMPTION DECREASED [None]
  - FLUID RETENTION [None]
  - LIMB INJURY [None]
